FAERS Safety Report 12955062 (Version 2)
Quarter: 2016Q4

REPORT INFORMATION
  Report Type: Report from Study
  Country: CA (occurrence: CA)
  Receive Date: 20161118
  Receipt Date: 20161215
  Transmission Date: 20170207
  Serious: Yes (Hospitalization, Other)
  Sender: FDA-Public Use
  Company Number: CA-TEVA-712254ACC

PATIENT
  Age: 68 Year
  Sex: Female

DRUGS (17)
  1. GABAPENTIN. [Concomitant]
     Active Substance: GABAPENTIN
  2. FUROSEMIDE. [Concomitant]
     Active Substance: FUROSEMIDE
  3. CALCIUM [Concomitant]
     Active Substance: CALCIUM
  4. TRAZODONE [Concomitant]
     Active Substance: TRAZODONE HYDROCHLORIDE
  5. LOPROX [Concomitant]
     Active Substance: CICLOPIROX\CICLOPIROX OLAMINE
  6. ALENDRONATE [Concomitant]
     Active Substance: ALENDRONATE SODIUM
  7. DICLOFENAC SODIUM. [Concomitant]
     Active Substance: DICLOFENAC SODIUM
  8. LUMIGAN [Concomitant]
     Active Substance: BIMATOPROST
  9. VITAMIN C [Concomitant]
     Active Substance: ASCORBIC ACID
  10. COPAXONE [Suspect]
     Active Substance: GLATIRAMER ACETATE
     Indication: MULTIPLE SCLEROSIS
     Dosage: 20 MILLIGRAM/MILLILITERS DAILY;
     Route: 058
     Dates: start: 20160404
  11. BETOPTIC [Concomitant]
     Active Substance: BETAXOLOL HYDROCHLORIDE
  12. REQUIP [Concomitant]
     Active Substance: ROPINIROLE HYDROCHLORIDE
  13. OLOPATADINE [Concomitant]
     Active Substance: OLOPATADINE
     Route: 047
  14. VITAMIN B [Concomitant]
     Active Substance: VITAMIN B
  15. AZOPT [Concomitant]
     Active Substance: BRINZOLAMIDE
  16. BACLOFEN. [Concomitant]
     Active Substance: BACLOFEN
  17. VITAMIN D [Concomitant]
     Active Substance: CHOLECALCIFEROL

REACTIONS (4)
  - Pneumonia [Recovering/Resolving]
  - Body temperature increased [Recovering/Resolving]
  - Loss of consciousness [Recovering/Resolving]
  - Urinary tract infection [Recovering/Resolving]

NARRATIVE: CASE EVENT DATE: 20160718
